FAERS Safety Report 8861675 (Version 1)
Quarter: 2012Q4

REPORT INFORMATION
  Report Type: 
  Country: US (occurrence: US)
  Receive Date: 20121025
  Receipt Date: 20121025
  Transmission Date: 20130627
  Serious: No
  Sender: FDA-Public Use
  Company Number: US-AMGEN-USASP2012019576

PATIENT
  Sex: Male

DRUGS (12)
  1. ENBREL [Suspect]
     Indication: RHEUMATOID ARTHRITIS
     Dosage: 50 mg, qwk
     Route: 058
     Dates: start: 201110
  2. METFORMIN [Concomitant]
     Dosage: UNK
  3. CALCIUM [Concomitant]
     Dosage: UNK
  4. FISH OIL [Concomitant]
     Dosage: UNK
  5. VITAMIN B [Concomitant]
     Dosage: UNK
  6. MULTIVITAMIN                       /02371501/ [Concomitant]
     Dosage: UNK
  7. METHOTREXATE [Concomitant]
     Dosage: UNK
  8. FOLIC ACID [Concomitant]
     Dosage: UNK
  9. LANTUS [Concomitant]
     Dosage: UNK
  10. HUMALOG [Concomitant]
     Dosage: UNK
  11. LIPITOR [Concomitant]
     Dosage: UNK
  12. DIOVAN [Concomitant]
     Dosage: UNK

REACTIONS (2)
  - Rash [Not Recovered/Not Resolved]
  - Rash pruritic [Recovered/Resolved]
